FAERS Safety Report 11529801 (Version 2)
Quarter: 2015Q4

REPORT INFORMATION
  Report Type: Spontaneous
  Country: US (occurrence: US)
  Receive Date: 20150921
  Receipt Date: 20151002
  Transmission Date: 20160304
  Serious: Yes (Death, Hospitalization, Other)
  Sender: FDA-Public Use
  Company Number: US-GLAXOSMITHKLINE-US2015133676

PATIENT
  Age: 85 Year
  Sex: Female

DRUGS (4)
  1. SINGULAIR [Concomitant]
     Active Substance: MONTELUKAST SODIUM
  2. AMLODIPINE [Concomitant]
     Active Substance: AMLODIPINE BESYLATE
  3. ZOLOFT [Concomitant]
     Active Substance: SERTRALINE HYDROCHLORIDE
  4. ADVAIR DISKUS [Suspect]
     Active Substance: FLUTICASONE PROPIONATE\SALMETEROL XINAFOATE
     Indication: CHRONIC OBSTRUCTIVE PULMONARY DISEASE
     Dosage: 500/50
     Route: 055

REACTIONS (8)
  - Cardiac arrest [Fatal]
  - Acute kidney injury [Recovered/Resolved with Sequelae]
  - Myocardial infarction [Unknown]
  - Vascular occlusion [Unknown]
  - Hip fracture [Fatal]
  - Coronary artery bypass [Unknown]
  - Dialysis [Unknown]
  - Nephropathy [Unknown]

NARRATIVE: CASE EVENT DATE: 201311
